FAERS Safety Report 8662055 (Version 2)
Quarter: 2012Q4

REPORT INFORMATION
  Report Type: 
  Country: AU (occurrence: AU)
  Receive Date: 20120712
  Receipt Date: 20120917
  Transmission Date: 20130627
  Serious: Yes (Death)
  Sender: FDA-Public Use
  Company Number: AU-B.I. PHARMACEUTICALS,INC./RIDGEFIELD-2012-AU-01237AU

PATIENT
  Age: 81 Year
  Sex: Male
  Weight: 89.9 kg

DRUGS (6)
  1. PRADAXA [Suspect]
     Indication: CEREBROVASCULAR ACCIDENT PROPHYLAXIS
     Dosage: 220 mg
     Dates: start: 20110823, end: 20120303
  2. PRADAXA [Suspect]
     Indication: ATRIAL FIBRILLATION
  3. DIGOXIN [Concomitant]
     Dosage: 0.125 mg
  4. ATORVASTATIN [Concomitant]
     Dosage: 20 mg
  5. FRUSEMIDE [Concomitant]
     Dosage: 80 mg
  6. SERETIDE [Concomitant]
     Dosage: 250/50

REACTIONS (3)
  - Non-small cell lung cancer metastatic [Fatal]
  - Small intestinal obstruction [Unknown]
  - Hypovolaemia [Unknown]
